FAERS Safety Report 7598646-5 (Version None)
Quarter: 2011Q3

REPORT INFORMATION
  Report Type: 
  Country: None (occurrence: None)
  Receive Date: 20110711
  Receipt Date: 20110630
  Transmission Date: 20111222
  Serious: Yes (Other)
  Sender: FDA-Public Use
  Company Number: JP-BRISTOL-MYERS SQUIBB COMPANY-15871718

PATIENT
  Age: 7 Decade
  Sex: Male

DRUGS (1)
  1. TAXOL [Suspect]

REACTIONS (3)
  - EXTRAVASATION [None]
  - PERIPHERAL SENSORY NEUROPATHY [None]
  - PARALYSIS [None]
